FAERS Safety Report 21822311 (Version 2)
Quarter: 2023Q1

REPORT INFORMATION
  Report Type: Spontaneous
  Country: US (occurrence: US)
  Receive Date: 20230105
  Receipt Date: 20230113
  Transmission Date: 20230417
  Serious: No
  Sender: FDA-Public Use
  Company Number: US-BRISTOL-MYERS SQUIBB COMPANY-2023-001799

PATIENT
  Age: 64 Year
  Sex: Female

DRUGS (1)
  1. SPRYCEL [Suspect]
     Active Substance: DASATINIB
     Indication: Chronic myeloid leukaemia
     Route: 048

REACTIONS (9)
  - Sneezing [Unknown]
  - Decreased appetite [Recovering/Resolving]
  - Nausea [Unknown]
  - Taste disorder [Unknown]
  - Illness [Unknown]
  - Pulmonary mass [Unknown]
  - Feeling of body temperature change [Unknown]
  - Dizziness [Unknown]
  - Pain [Unknown]
